FAERS Safety Report 8299617-6 (Version None)
Quarter: 2012Q2

REPORT INFORMATION
  Report Type: 
  Country: None (occurrence: None)
  Receive Date: 20120419
  Receipt Date: 20110610
  Transmission Date: 20120825
  Serious: Yes (Hospitalization)
  Sender: FDA-Public Use
  Company Number: HU-GLAXOSMITHKLINE-B0614383A

PATIENT

DRUGS (2)
  1. LAPATINIB [Suspect]
     Indication: BREAST CANCER
     Route: 048
  2. PACLITAXEL [Suspect]
     Indication: BREAST CANCER
     Route: 042

REACTIONS (7)
  - DIARRHOEA [None]
  - DEHYDRATION [None]
  - THROMBOCYTOPENIA [None]
  - HERPES ZOSTER [None]
  - ANAEMIA [None]
  - NEUTROPENIA [None]
  - MUCOSAL INFLAMMATION [None]
